FAERS Safety Report 5422415-5 (Version None)
Quarter: 2007Q3

REPORT INFORMATION
  Report Type: 
  Country: None (occurrence: None)
  Receive Date: 20070822
  Receipt Date: 20070813
  Transmission Date: 20080115
  Serious: Yes (Hospitalization, Other)
  Sender: FDA-Public Use
  Company Number: B0479159A

PATIENT
  Age: 68 Year
  Sex: Female

DRUGS (2)
  1. AUGMENTIN '125' [Suspect]
     Indication: INFECTED CYST
     Dosage: 1TAB THREE TIMES PER DAY
     Route: 048
     Dates: start: 20070604, end: 20070611
  2. CALCICHEW D3 FORTE [Concomitant]
     Route: 065
     Dates: start: 20070502

REACTIONS (14)
  - ABDOMINAL PAIN [None]
  - ALANINE AMINOTRANSFERASE INCREASED [None]
  - BLOOD ALKALINE PHOSPHATASE INCREASED [None]
  - BLOOD BILIRUBIN INCREASED [None]
  - CHROMATURIA [None]
  - DYSGEUSIA [None]
  - DYSURIA [None]
  - HAEMATOCRIT DECREASED [None]
  - HEPATIC ENZYME INCREASED [None]
  - JAUNDICE [None]
  - LYMPHOCYTE COUNT DECREASED [None]
  - MALAISE [None]
  - NAUSEA [None]
  - PAINFUL DEFAECATION [None]
